FAERS Safety Report 8465261-0 (Version None)
Quarter: 2012Q2

REPORT INFORMATION
  Report Type: 
  Country: None (occurrence: None)
  Receive Date: 20120626
  Receipt Date: 20120621
  Transmission Date: 20120825
  Serious: Yes (Hospitalization)
  Sender: FDA-Public Use
  Company Number: PHHY2012IT054029

PATIENT
  Sex: Female

DRUGS (5)
  1. LASIX [Concomitant]
     Dosage: 25 MG, UNK
     Route: 048
     Dates: start: 20110427, end: 20120426
  2. RAMIPRIL [Concomitant]
     Dosage: 10 MG, UNK
     Route: 048
  3. ALLOPURINOL [Concomitant]
     Dosage: 1 DF, UNK
     Route: 048
  4. CANRENONE [Concomitant]
     Dosage: 50 MG, UNK
     Dates: start: 20110427, end: 20120426
  5. TEGRETOL [Suspect]
     Dosage: 800 MG, DAILY
     Route: 048
     Dates: start: 20110427, end: 20120426

REACTIONS (3)
  - SUPRAVENTRICULAR EXTRASYSTOLES [None]
  - SYNCOPE [None]
  - BUNDLE BRANCH BLOCK RIGHT [None]
